FAERS Safety Report 8010811-1 (Version None)
Quarter: 2011Q4

REPORT INFORMATION
  Report Type: 
  Country: None (occurrence: None)
  Receive Date: 20111222
  Receipt Date: 20111209
  Transmission Date: 20120403
  Serious: Yes (Life-Threatening, Hospitalization, Other)
  Sender: FDA-Public Use
  Company Number: AUR-APL-2011-04861

PATIENT
  Age: 71 Year
  Sex: Female
  Weight: 74 kg

DRUGS (9)
  1. FUROSEMIDE [Concomitant]
  2. CLOPIDOGREL [Concomitant]
  3. ASPIRIN (ACETYLSALICYILIC ACID) [Concomitant]
  4. ACETAMINOPHEN [Concomitant]
  5. LACTULOSE [Concomitant]
  6. SIMVASTATIN [Concomitant]
  7. RAMIPRIL [Suspect]
     Indication: HYPERTENSION
     Dosage: 5 MG (5 MG, 1 IN 1 D), ORAL
     Route: 048
     Dates: start: 20110404, end: 20110811
  8. BISOPROLOL FUMARATE [Concomitant]
  9. PREDNISOLONE [Concomitant]

REACTIONS (1)
  - ANGIOEDEMA [None]
